FAERS Safety Report 9143785 (Version 2)
Quarter: 2013Q1

REPORT INFORMATION
  Report Type: Spontaneous
  Country: DE (occurrence: DE)
  Receive Date: 20130306
  Receipt Date: 20130322
  Transmission Date: 20140127
  Serious: Yes (Other)
  Sender: FDA-Public Use
  Company Number: DE-TEVA-389181GER

PATIENT
  Age: 52 Year
  Sex: Female

DRUGS (1)
  1. VENTOLAIR [Suspect]
     Route: 055

REACTIONS (2)
  - Foreign body aspiration [Recovered/Resolved]
  - Chest pain [Recovered/Resolved]
